FAERS Safety Report 20141523 (Version 2)
Quarter: 2021Q4

REPORT INFORMATION
  Report Type: Report from Study
  Country: US (occurrence: US)
  Receive Date: 20211202
  Receipt Date: 20211209
  Transmission Date: 20220303
  Serious: Yes (Hospitalization)
  Sender: FDA-Public Use
  Company Number: US-BAYER-2021A228821

PATIENT
  Age: 69 Year
  Sex: Female

DRUGS (3)
  1. ADEMPAS [Suspect]
     Active Substance: RIOCIGUAT
     Indication: Pulmonary arterial hypertension
     Dosage: UNK
  2. ADEMPAS [Suspect]
     Active Substance: RIOCIGUAT
     Indication: Pulmonary arterial hypertension
     Dosage: 0.5 MG, TID
     Dates: start: 2021
  3. ADEMPAS [Suspect]
     Active Substance: RIOCIGUAT
     Indication: Pulmonary arterial hypertension
     Dosage: 1 MG, TID
     Route: 048
     Dates: start: 20210918

REACTIONS (9)
  - Dyspnoea [None]
  - Fatigue [None]
  - Cyanosis [None]
  - Faeces discoloured [None]
  - Pulmonary haemorrhage [None]
  - Dyspnoea [None]
  - Headache [None]
  - Heart rate increased [None]
  - Hypotension [Recovering/Resolving]

NARRATIVE: CASE EVENT DATE: 20210101
